FAERS Safety Report 5956121-5 (Version None)
Quarter: 2008Q4

REPORT INFORMATION
  Report Type: 
  Country: None (occurrence: None)
  Receive Date: 20081112
  Receipt Date: 20081104
  Transmission Date: 20090506
  Serious: Yes (Life-Threatening, Hospitalization, Disabling)
  Sender: FDA-Public Use
  Company Number: 08US001109

PATIENT
  Age: 33 Year
  Sex: Male

DRUGS (2)
  1. LITHIUM CARBONATE [Suspect]
     Indication: BIPOLAR DISORDER
     Dosage: 2100 MG, QD, ORAL
     Route: 048
  2. PSYCHOTROPIC MEDICATIONS [Concomitant]

REACTIONS (12)
  - ABASIA [None]
  - ABDOMINAL DISCOMFORT [None]
  - ANTIPSYCHOTIC DRUG LEVEL BELOW THERAPEUTIC [None]
  - COMA [None]
  - DIARRHOEA [None]
  - IMPRISONMENT [None]
  - INAPPROPRIATE SCHEDULE OF DRUG ADMINISTRATION [None]
  - NEUROPATHY PERIPHERAL [None]
  - THERAPEUTIC AGENT TOXICITY [None]
  - UNEMPLOYMENT [None]
  - VOMITING [None]
  - WHEELCHAIR USER [None]
